FAERS Safety Report 9187802 (Version 1)
Quarter: 2013Q1

REPORT INFORMATION
  Report Type: Spontaneous
  Country: US (occurrence: US)
  Receive Date: 20130325
  Receipt Date: 20130325
  Transmission Date: 20140127
  Serious: Yes (Other)
  Sender: FDA-Public Use
  Company Number: US-MYLANLABS-2012S1009108

PATIENT
  Age: 67 Year
  Sex: Female

DRUGS (2)
  1. FENTANYL TRANSDERMAL SYSTEM [Suspect]
     Indication: PAIN
     Dosage: Q3D
     Route: 062
     Dates: start: 2012, end: 20120418
  2. FENTANYL TRANSDERMAL SYSTEM [Suspect]
     Indication: PAIN
     Dosage: Q3D
     Route: 062
     Dates: start: 20120419

REACTIONS (1)
  - Withdrawal syndrome [Recovered/Resolved]
